FAERS Safety Report 25590554 (Version 1)
Quarter: 2025Q3

REPORT INFORMATION
  Report Type: Spontaneous
  Country: EU (occurrence: EU)
  Receive Date: 20250722
  Receipt Date: 20250722
  Transmission Date: 20251021
  Serious: Yes (Other)
  Sender: NOVARTIS
  Company Number: EU-002147023-NVSC2025NL111979

PATIENT
  Sex: Male

DRUGS (3)
  1. NILOTINIB [Suspect]
     Active Substance: NILOTINIB
     Indication: B-cell type acute leukaemia
     Dosage: 300 MG, BID
     Route: 065
  2. Natrium phosphate [Concomitant]
     Indication: Product used for unknown indication
     Route: 065
  3. CHOLECALCIFEROL [Concomitant]
     Active Substance: CHOLECALCIFEROL
     Indication: Product used for unknown indication
     Route: 065

REACTIONS (3)
  - Electrocardiogram QT prolonged [Unknown]
  - Drug intolerance [Unknown]
  - Off label use [Unknown]
